FAERS Safety Report 18129982 (Version 1)
Quarter: 2020Q3

REPORT INFORMATION
  Report Type: Spontaneous
  Country: US (occurrence: US)
  Receive Date: 20200810
  Receipt Date: 20200810
  Transmission Date: 20201103
  Serious: No
  Sender: FDA-Public Use
  Company Number: NVSC2020US216439

PATIENT
  Sex: Female

DRUGS (4)
  1. ESTRADIOL. [Suspect]
     Active Substance: ESTRADIOL
     Indication: PRODUCT USED FOR UNKNOWN INDICATION
     Dosage: UNK
     Route: 065
  2. VIVELLE?DOT [Suspect]
     Active Substance: ESTRADIOL
     Indication: PRODUCT USED FOR UNKNOWN INDICATION
     Dosage: UNK
     Route: 065
  3. MINIVELLE [Concomitant]
     Active Substance: ESTRADIOL
     Indication: MENOPAUSAL SYMPTOMS
     Dosage: 1 DF, BIW
     Route: 065
     Dates: end: 202005
  4. MINIVELLE [Concomitant]
     Active Substance: ESTRADIOL
     Dosage: 1 DF, BIW, 1 TRANSDERMAL PATCH, CHANGED 2X/WEEK
     Route: 065
     Dates: start: 202007

REACTIONS (2)
  - Depression [Unknown]
  - Insomnia [Unknown]
